FAERS Safety Report 7938278 (Version 11)
Quarter: 2014Q2

REPORT INFORMATION
  Report Type: Spontaneous
  Country: US (occurrence: None)
  Receive Date: 20110420
  Receipt Date: 20130517
  Transmission Date: 20141212
  Serious: Yes (Hospitalization, Other)
  Sender: FDA-Public Use
  Company Number: CIP11000527

PATIENT
  Age: 90 Year
  Sex: Female

DRUGS (40)
  1. ACTONEL [Suspect]
     Indication: OSTEOPOROSIS
     Route: 048
     Dates: start: 20020621, end: 200801
  2. FOSAMAX [Suspect]
     Indication: OSTEOPOROSIS
     Dosage: 70 MG ONCE WEEKLY, ORAL
     Route: 048
     Dates: start: 20080430
  3. LASIX  (FUROSEMIDE) [Concomitant]
  4. LISINOPRIL (LISINOPRIL) [Concomitant]
  5. VOLTAREN (DICLOFENAC) [Concomitant]
  6. ASPIRIN [Concomitant]
  7. EVISTA (RALOXIFENE) [Concomitant]
  8. PROTONIX  (PANTOPRAZOLE) [Concomitant]
  9. COMBIVENT (IPRATOROPIUM BROMIDE, SALBUTAMOL SULFATE) [Concomitant]
  10. MULTIVITAMIN (ASCORBIC ACID, CALCIUM PANTOTHENATE, ERGOCALCIFEROL, NICOTINAMIDE, PYRIDOXINE HYDORCHLORIDE, RETINOL, RIBOFLAVIN, THIAMINE HYDORCHLORIDE) [Concomitant]
  11. OSCAL  (CALCIUM CARBONATE) [Concomitant]
  12. AVELOX (MOXIFLOXACIN HYDROCHLORIDE) [Concomitant]
  13. FLONASE (FLUTICASONE PROPIONATE) [Concomitant]
  14. MEDROL  (METHYLPREDNISOLONE) [Concomitant]
  15. ZYRTEC-D (CETIRIZINE HYDOCHLORIDE, PSEUDOEPHEDRINE HYDROCHLORIDE) [Concomitant]
  16. ROBITUSSIN AC  (CODEINE PHOSPHATE, GUAIFENESIN, PHENIRAMINE MALEATE) [Concomitant]
  17. PRILOSEC  (OMEPRAZOLE) [Concomitant]
  18. PENICILLIN VK  (PHENOXYMETHYLPENICILLIN) [Concomitant]
  19. LEVAQUIN (LEVOFLOXACIN) [Concomitant]
  20. PREDNISONE (PREDNISONE) [Concomitant]
  21. Z-PAK (AZITHROMYCIN) [Concomitant]
  22. PROVENTIL  (SALBUTAMOL) [Concomitant]
  23. LOPID (GEMFIBROZIL) [Concomitant]
  24. DEPOMEDROL (METHYLPREDNISOLONE ACETATE) [Concomitant]
  25. SEPTRA (SULFAMETHOXAZOLE, TRIMETHOPRIM) [Concomitant]
  26. LOTENSIN  (CAPTOPRIL) [Concomitant]
  27. BEXTRA  (PARECOXIB SODIUM) [Concomitant]
  28. NORVASC (AMLODIPINE BESILATE) [Concomitant]
  29. MICRO K (POTASSIUM CHLORIDE) [Concomitant]
  30. COUMADIN  (WARFARIN SODIUM) [Concomitant]
  31. ASCRIPTIN (ACETYLSALICYLIC ACID, ALUMINIUM HYDROXIDE, MAGNESIUM HYDROXIDE) [Concomitant]
  32. CIPRO  (CIPROFLOXACIN) [Concomitant]
  33. PYRIDIUM (PHENAZOPYRIDINE HYDROCHLORIDE) [Concomitant]
  34. TUMS  (CALCIUM CARBONATE) [Concomitant]
  35. PEPCID (FAMOTIDINE) [Concomitant]
  36. SOLUMEDROL (METHYLPREDNISOLONE SODIUM SUCCINATE)? [Concomitant]
  37. FLOVENT (FLUTICASONE PROPIONATE) [Concomitant]
  38. OXYCODONE/APAP  (OXYCODONE, PARACETAMOL) [Concomitant]
  39. CEPHALEXIN (CEPHALEXIN) [Concomitant]
  40. ALENDRONATE (ALENDRONATE SODIUM) [Suspect]
     Indication: OSTEOPOROSIS
     Dates: start: 200804, end: 200903

REACTIONS (35)
  - Comminuted fracture [None]
  - Femur fracture [None]
  - Fall [None]
  - Arthralgia [None]
  - Pain in extremity [None]
  - Haemoglobin decreased [None]
  - Mobility decreased [None]
  - Activities of daily living impaired [None]
  - VIIth nerve paralysis [None]
  - Cerebral infarction [None]
  - Cystitis interstitial [None]
  - Nervous system disorder [None]
  - Fracture delayed union [None]
  - Haemoglobin decreased [None]
  - Kidney infection [None]
  - Endodontic procedure [None]
  - Rotator cuff syndrome [None]
  - Periarthritis [None]
  - Cellulitis [None]
  - Post procedural complication [None]
  - Ventricular extrasystoles [None]
  - Fracture displacement [None]
  - Macular degeneration [None]
  - Rotator cuff syndrome [None]
  - Urosepsis [None]
  - Head injury [None]
  - Transient ischaemic attack [None]
  - Femur fracture [None]
  - Femur fracture [None]
  - Femur fracture [None]
  - Non-cardiac chest pain [None]
  - Osteoporosis [None]
  - Condition aggravated [None]
  - Cerebrovascular accident [None]
  - Walking aid user [None]
